FAERS Safety Report 4607694-6 (Version None)
Quarter: 2005Q1

REPORT INFORMATION
  Report Type: 
  Country: None (occurrence: None)
  Receive Date: 20050309
  Receipt Date: 20050225
  Transmission Date: 20050727
  Serious: No
  Sender: FDA-Public Use
  Company Number: GBS050216745

PATIENT
  Age: 17 Year
  Sex: Male
  Weight: 58 kg

DRUGS (2)
  1. STRATTERA [Suspect]
     Dosage: 60 MG/1 DAY
  2. METHYLPHENIDATE [Concomitant]

REACTIONS (8)
  - BLOOD ALKALINE PHOSPHATASE INCREASED [None]
  - BLOOD BILIRUBIN INCREASED [None]
  - EPISTAXIS [None]
  - HEADACHE [None]
  - INADEQUATE ANALGESIA [None]
  - MALAISE [None]
  - PYREXIA [None]
  - VIRAL INFECTION [None]
